FAERS Safety Report 20312451 (Version 1)
Quarter: 2022Q1

REPORT INFORMATION
  Report Type: Spontaneous
  Country: US (occurrence: None)
  Receive Date: 20220107
  Receipt Date: 20220107
  Transmission Date: 20220423
  Serious: Yes (Other)
  Sender: FDA-Public Use
  Company Number: None

PATIENT
  Age: 41 Year
  Sex: Male
  Weight: 89.1 kg

DRUGS (2)
  1. REGEN-COV [Suspect]
     Active Substance: CASIRIVIMAB\IMDEVIMAB
     Indication: COVID-19
     Dates: start: 20220107, end: 20220107
  2. REGEN-COV [Concomitant]
     Active Substance: CASIRIVIMAB\IMDEVIMAB
     Dates: start: 20220107, end: 20220107

REACTIONS (1)
  - Injection site rash [None]

NARRATIVE: CASE EVENT DATE: 20220107
